FAERS Safety Report 16728287 (Version 1)
Quarter: 2019Q3

REPORT INFORMATION
  Report Type: Spontaneous
  Country: DE (occurrence: DE)
  Receive Date: 20190822
  Receipt Date: 20190822
  Transmission Date: 20191005
  Serious: Yes (Hospitalization)
  Sender: FDA-Public Use
  Company Number: DE-TEVA-2019-DE-1094699

PATIENT
  Age: 50 Year
  Sex: Female

DRUGS (4)
  1. DIMENHYDRINAT [Concomitant]
     Active Substance: DIMENHYDRINATE
     Dosage: NK MG, NK
  2. BUPROPION. [Suspect]
     Active Substance: BUPROPION
     Dosage: 30 MG, 0-0-1-0 NO LONGER AVAILABLE FOR TWO WEEKS
  3. IBUPROFEN. [Suspect]
     Active Substance: IBUPROFEN
     Dosage: NK MG, NK
  4. BUTYLSCOPOLAMIN [Concomitant]
     Dosage: NK MG, NK

REACTIONS (1)
  - Abdominal pain upper [Unknown]
